FAERS Safety Report 17530798 (Version 3)
Quarter: 2020Q3

REPORT INFORMATION
  Report Type: Spontaneous
  Country: US (occurrence: US)
  Receive Date: 20200311
  Receipt Date: 20200713
  Transmission Date: 20201102
  Serious: Yes (Other)
  Sender: FDA-Public Use
  Company Number: NVSC2020US067157

PATIENT
  Age: 83 Year
  Sex: Female

DRUGS (3)
  1. BEOVU [Suspect]
     Active Substance: BROLUCIZUMAB-DBLL
     Dosage: UNK UNK, QMO (BOTH EYES)
     Route: 047
     Dates: start: 20200121
  2. BEOVU [Suspect]
     Active Substance: BROLUCIZUMAB-DBLL
     Dosage: 6 MG, QMO (BOTH EYES)
     Route: 047
     Dates: start: 20191218
  3. BEOVU [Suspect]
     Active Substance: BROLUCIZUMAB-DBLL
     Indication: NEOVASCULAR AGE-RELATED MACULAR DEGENERATION
     Dosage: UNK (LEFT EYE)
     Route: 047
     Dates: start: 20191120

REACTIONS (5)
  - Intraocular pressure increased [Recovering/Resolving]
  - Vision blurred [Recovering/Resolving]
  - Iritis [Not Recovered/Not Resolved]
  - Iritis [Recovered/Resolved with Sequelae]
  - Visual acuity reduced [Recovering/Resolving]

NARRATIVE: CASE EVENT DATE: 20200127
